FAERS Safety Report 20585390 (Version 1)
Quarter: 2022Q1

REPORT INFORMATION
  Report Type: Spontaneous
  Country: CA (occurrence: CA)
  Receive Date: 20220312
  Receipt Date: 20220312
  Transmission Date: 20220424
  Serious: Yes (Other)
  Sender: FDA-Public Use
  Company Number: CA-CELLTRION INC.-2022CA002942

PATIENT

DRUGS (1)
  1. INFLECTRA [Suspect]
     Active Substance: INFLIXIMAB-DYYB
     Indication: Colitis ulcerative
     Dosage: 400 MG INDUCTION AT Q 0 , 2, 6 THEN EVERY 8 WEEKS
     Route: 042
     Dates: start: 20220208

REACTIONS (13)
  - Pericarditis [Unknown]
  - Chest discomfort [Unknown]
  - Dyspnoea [Unknown]
  - Musculoskeletal chest pain [Unknown]
  - Regurgitation [Unknown]
  - Abdominal discomfort [Unknown]
  - Nausea [Unknown]
  - Feeling abnormal [Unknown]
  - Anal fissure [Unknown]
  - Dehydration [Unknown]
  - Malaise [Unknown]
  - Headache [Unknown]
  - Early satiety [Unknown]
